FAERS Safety Report 7764379 (Version 5)
Quarter: 2014Q4

REPORT INFORMATION
  Report Type: Spontaneous
  Country: US (occurrence: US)
  Receive Date: 20110118
  Receipt Date: 20141212
  Transmission Date: 20150529
  Serious: Yes (Hospitalization, Other)
  Sender: FDA-Public Use
  Company Number: US-ASTRAZENECA-2011SE01690

PATIENT
  Age: 43 Year
  Sex: Male

DRUGS (3)
  1. RHINOCORT AQUA [Suspect]
     Active Substance: BUDESONIDE
     Indication: MULTIPLE ALLERGIES
     Route: 045
     Dates: start: 2003
  2. NASONEX [Concomitant]
     Active Substance: MOMETASONE FUROATE
  3. GENERIC MEDICATION [Concomitant]
     Active Substance: UNSPECIFIED INGREDIENT
     Indication: HEART RATE IRREGULAR

REACTIONS (8)
  - Dyspnoea [Unknown]
  - Throat irritation [Unknown]
  - Drug dose omission [Unknown]
  - Oropharyngeal pain [Unknown]
  - Dyspnoea exertional [Unknown]
  - Sinus headache [Unknown]
  - Heart rate irregular [Unknown]
  - Expired product administered [Unknown]

NARRATIVE: CASE EVENT DATE: 2003
